FAERS Safety Report 5220639-3 (Version None)
Quarter: 2007Q1

REPORT INFORMATION
  Report Type: 
  Country: None (occurrence: None)
  Receive Date: 20070125
  Receipt Date: 20070125
  Transmission Date: 20070707
  Serious: Yes (Hospitalization)
  Sender: FDA-Public Use
  Company Number: None

PATIENT
  Sex: Female
  Weight: 43.9989 kg

DRUGS (10)
  1. DIGOXIN [Suspect]
     Indication: ATRIAL FIBRILLATION
     Dosage: 0.125 MG PO QD
     Route: 048
  2. COUMADIN [Concomitant]
  3. PREMARIN [Concomitant]
  4. FUROSEMIDE [Concomitant]
  5. FOSAMAX [Concomitant]
  6. KLOR-CON [Concomitant]
  7. PRAVACHOL [Concomitant]
  8. XALATAN [Concomitant]
  9. COREG [Concomitant]
  10. SPIRONOLACTONE [Concomitant]

REACTIONS (1)
  - THERAPEUTIC AGENT TOXICITY [None]
